FAERS Safety Report 5284261-5 (Version None)
Quarter: 2007Q2

REPORT INFORMATION
  Report Type: 
  Country: None (occurrence: None)
  Receive Date: 20070403
  Receipt Date: 20070329
  Transmission Date: 20071010
  Serious: Yes (Death)
  Sender: FDA-Public Use
  Company Number: PHEH2007US03741

PATIENT
  Age: 90 Year
  Sex: Male

DRUGS (1)
  1. EXJADE [Suspect]
     Indication: IRON OVERLOAD
     Dosage: 1.5 G, QD
     Route: 048
     Dates: start: 20061104, end: 20070210

REACTIONS (1)
  - DEATH [None]
